FAERS Safety Report 16721372 (Version 1)
Quarter: 2019Q3

REPORT INFORMATION
  Report Type: Spontaneous
  Country: DE (occurrence: DE)
  Receive Date: 20190820
  Receipt Date: 20190820
  Transmission Date: 20191005
  Serious: Yes (Hospitalization, Other)
  Sender: FDA-Public Use
  Company Number: DE-BAUSCH-BL-2019-023151

PATIENT
  Sex: Male
  Weight: 110 kg

DRUGS (9)
  1. ZESSLY [Suspect]
     Active Substance: INFLIXIMAB
     Route: 065
     Dates: start: 20190402
  2. AZATHIOPRINE. [Suspect]
     Active Substance: AZATHIOPRINE
     Indication: COLITIS ULCERATIVE
     Route: 065
     Dates: start: 20181115
  3. ZESSLY [Suspect]
     Active Substance: INFLIXIMAB
     Indication: COLITIS ULCERATIVE
     Route: 065
     Dates: start: 20190625
  4. COTRIM [Concomitant]
     Active Substance: SULFAMETHOXAZOLE\TRIMETHOPRIM
     Indication: ANTIFUNGAL PROPHYLAXIS
     Route: 065
     Dates: start: 20190731
  5. PREDNISOLONE. [Suspect]
     Active Substance: PREDNISOLONE
     Indication: COLITIS ULCERATIVE
     Route: 065
     Dates: start: 20190727
  6. ZESSLY [Suspect]
     Active Substance: INFLIXIMAB
     Route: 065
     Dates: start: 20190724
  7. ZESSLY [Suspect]
     Active Substance: INFLIXIMAB
     Route: 065
     Dates: start: 20190319
  8. ZESSLY [Suspect]
     Active Substance: INFLIXIMAB
     Route: 065
     Dates: start: 20190430
  9. FERROSANOL [Concomitant]
     Active Substance: FERROUS GLUCONATE
     Indication: IRON DEFICIENCY
     Route: 065
     Dates: start: 20190727

REACTIONS (2)
  - Colitis ulcerative [Recovered/Resolved]
  - Diarrhoea haemorrhagic [Recovered/Resolved]

NARRATIVE: CASE EVENT DATE: 20190727
